FAERS Safety Report 4922620-8 (Version None)
Quarter: 2006Q1

REPORT INFORMATION
  Report Type: 
  Country: None (occurrence: None)
  Receive Date: 20060223
  Receipt Date: 20060223
  Transmission Date: 20060701
  Serious: Yes (Other)
  Sender: FDA-Public Use
  Company Number: None

PATIENT
  Sex: Male

DRUGS (12)
  1. CYTOXAN [Suspect]
     Indication: PROSTATE CANCER
     Dosage: 763 MG
     Dates: start: 20051214, end: 20051216
  2. FLUDARABINE PHOSPHATE [Suspect]
     Indication: PROSTATE CANCER
     Dosage: 44 MG IV QD X 3 DAYS
     Route: 042
     Dates: start: 20051214, end: 20051216
  3. GVAX VACCINE [Suspect]
  4. GVAX VACCINE [Suspect]
     Indication: PROSTATE CANCER
     Dosage: 6.4 ML SQ Q 2 WKS
     Route: 058
     Dates: start: 20051220, end: 20060103
  5. PREDNISONE [Concomitant]
  6. MEGACE [Concomitant]
  7. MS CONTIN [Concomitant]
  8. DYAZIDE [Concomitant]
  9. NEURONTINE [Concomitant]
  10. POTASSIUM [Concomitant]
  11. COMPAZINE [Concomitant]
  12. XANAX [Concomitant]

REACTIONS (4)
  - CEREBROVASCULAR ACCIDENT [None]
  - GASTROINTESTINAL ARTERIOVENOUS MALFORMATION [None]
  - GASTROINTESTINAL HAEMORRHAGE [None]
  - RECTAL HAEMORRHAGE [None]
